FAERS Safety Report 4998214-5 (Version None)
Quarter: 2006Q2

REPORT INFORMATION
  Report Type: 
  Country: None (occurrence: None)
  Receive Date: 20060508
  Receipt Date: 20060428
  Transmission Date: 20061013
  Serious: Yes (Death)
  Sender: FDA-Public Use
  Company Number: CLOF-10231

PATIENT
  Age: 71 Year
  Sex: Female

DRUGS (2)
  1. CLOLAR [Suspect]
     Indication: ACUTE MYELOID LEUKAEMIA
     Dosage: 22.5 MG/M2 IV
     Route: 042
     Dates: start: 20060408, end: 20060412
  2. CYTOSINE ARABINOSIDE [Suspect]
     Indication: ACUTE MYELOID LEUKAEMIA
     Dates: start: 20060407

REACTIONS (21)
  - ATRIAL FIBRILLATION [None]
  - BASE EXCESS INCREASED [None]
  - BLOOD BICARBONATE INCREASED [None]
  - BREATH SOUNDS ABNORMAL [None]
  - CARBON DIOXIDE INCREASED [None]
  - CARDIOMEGALY [None]
  - CARDIOMYOPATHY [None]
  - CONDITION AGGRAVATED [None]
  - CREPITATIONS [None]
  - ELECTROCARDIOGRAM ABNORMAL [None]
  - ELECTROCARDIOGRAM T WAVE ABNORMAL [None]
  - LUNG INFILTRATION [None]
  - OXYGEN SATURATION DECREASED [None]
  - PCO2 INCREASED [None]
  - PERICARDIAL EFFUSION [None]
  - PO2 INCREASED [None]
  - PRODUCTIVE COUGH [None]
  - PULMONARY OEDEMA [None]
  - RESPIRATORY DISORDER [None]
  - SPUTUM DISCOLOURED [None]
  - WHEEZING [None]
